FAERS Safety Report 21252989 (Version 1)
Quarter: 2022Q3

REPORT INFORMATION
  Report Type: Report from Study
  Country: US (occurrence: US)
  Receive Date: 20220825
  Receipt Date: 20220825
  Transmission Date: 20221027
  Serious: Yes (Other)
  Sender: FDA-Public Use
  Company Number: US-BAYER-2022A115509

PATIENT
  Age: 43 Year
  Sex: Female
  Weight: 131.52 kg

DRUGS (4)
  1. ADEMPAS [Suspect]
     Active Substance: RIOCIGUAT
     Indication: Pulmonary arterial hypertension
     Dosage: 0.5 MG, TID
     Route: 048
     Dates: start: 20200309
  2. OPSUMIT [Concomitant]
     Active Substance: MACITENTAN
  3. TYVASO [Concomitant]
     Active Substance: TREPROSTINIL
  4. DILTIAZEM [Concomitant]
     Active Substance: DILTIAZEM

REACTIONS (4)
  - Atelectasis [None]
  - Dyspnoea [None]
  - Fatigue [None]
  - Chest discomfort [None]
